FAERS Safety Report 11784882 (Version 1)
Quarter: 2015Q4

REPORT INFORMATION
  Report Type: Spontaneous
  Country: US (occurrence: US)
  Receive Date: 20151130
  Receipt Date: 20151130
  Transmission Date: 20160305
  Serious: Yes (Other)
  Sender: FDA-Public Use
  Company Number: US-ACCORD-035874

PATIENT
  Age: 29 Year
  Sex: Male

DRUGS (3)
  1. GABAPENTIN. [Concomitant]
     Active Substance: GABAPENTIN
     Indication: PAIN
     Dosage: INITIALLY RECEIVED 300 MG DAILY.?DOSE CHANGED TO 300 MG IN MORNING AND 600 MG AT BEDTIME.
  2. TRAMADOL/TRAMADOL HYDROCHLORIDE [Suspect]
     Active Substance: TRAMADOL HYDROCHLORIDE
     Indication: PAIN
     Dosage: TID
  3. IBUPROFEN. [Concomitant]
     Active Substance: IBUPROFEN
     Indication: PAIN
     Dosage: TID

REACTIONS (4)
  - Erectile dysfunction [Recovered/Resolved]
  - Anorgasmia [None]
  - Polyuria [Recovered/Resolved]
  - Ejaculation failure [None]
